FAERS Safety Report 13125874 (Version 2)
Quarter: 2017Q1

REPORT INFORMATION
  Report Type: Spontaneous
  Country: US (occurrence: US)
  Receive Date: 20170118
  Receipt Date: 20170314
  Transmission Date: 20170428
  Serious: No
  Sender: FDA-Public Use
  Company Number: US-009507513-1701USA007648

PATIENT
  Sex: Male
  Weight: 105.67 kg

DRUGS (2)
  1. MEVACOR [Suspect]
     Active Substance: LOVASTATIN
     Indication: HYPERLIPIDAEMIA
     Dosage: 1 TABLET
     Route: 048
     Dates: start: 20100209, end: 20100827
  2. MEVACOR [Suspect]
     Active Substance: LOVASTATIN
     Indication: DYSLIPIDAEMIA

REACTIONS (1)
  - Myalgia [Recovered/Resolved]
